FAERS Safety Report 24347871 (Version 2)
Quarter: 2024Q4

REPORT INFORMATION
  Report Type: Report from Study
  Country: DE (occurrence: DE)
  Receive Date: 20240922
  Receipt Date: 20241027
  Transmission Date: 20250115
  Serious: No
  Sender: ABBVIE
  Company Number: DE-ABBVIE-5932040

PATIENT
  Age: 25 Year
  Sex: Female
  Weight: 103 kg

DRUGS (4)
  1. RISANKIZUMAB [Suspect]
     Active Substance: RISANKIZUMAB
     Indication: Crohn^s disease
     Route: 042
     Dates: start: 20240717, end: 20240717
  2. RISANKIZUMAB [Suspect]
     Active Substance: RISANKIZUMAB
     Indication: Crohn^s disease
     Route: 042
     Dates: start: 20240814, end: 20240814
  3. RISANKIZUMAB [Suspect]
     Active Substance: RISANKIZUMAB
     Indication: Crohn^s disease
     Route: 042
     Dates: start: 20240918, end: 20240918
  4. PENTASA [Concomitant]
     Active Substance: MESALAMINE
     Indication: Crohn^s disease
     Route: 048
     Dates: start: 20230517

REACTIONS (1)
  - Thrombophlebitis [Recovered/Resolved]

NARRATIVE: CASE EVENT DATE: 20240917
